FAERS Safety Report 6396338-1 (Version None)
Quarter: 2009Q4

REPORT INFORMATION
  Report Type: 
  Country: None (occurrence: None)
  Receive Date: 20091012
  Receipt Date: 20090929
  Transmission Date: 20100525
  Serious: Yes (Life-Threatening, Hospitalization)
  Sender: FDA-Public Use
  Company Number: JP-JNJFOC-20091000663

PATIENT
  Sex: Male
  Weight: 65 kg

DRUGS (8)
  1. REMICADE [Suspect]
     Route: 042
  2. REMICADE [Suspect]
     Indication: UVEITIS
     Route: 042
  3. REMICADE [Suspect]
     Indication: BEHCET'S SYNDROME
     Route: 042
  4. NEORAL [Concomitant]
     Indication: BEHCET'S SYNDROME
     Route: 048
  5. COLCHICINE [Concomitant]
     Indication: BEHCET'S SYNDROME
     Route: 048
  6. PREDONINE [Concomitant]
     Indication: BEHCET'S SYNDROME
     Route: 048
  7. PENTASA [Concomitant]
     Indication: BEHCET'S SYNDROME
     Route: 048
  8. NEO-MINOPHAGEN C [Concomitant]
     Indication: PROPHYLAXIS

REACTIONS (1)
  - LUNG NEOPLASM MALIGNANT [None]
